FAERS Safety Report 4317452-8 (Version None)
Quarter: 2004Q1

REPORT INFORMATION
  Report Type: 
  Country: None (occurrence: None)
  Receive Date: 20040312
  Receipt Date: 20040301
  Transmission Date: 20041129
  Serious: Yes (Hospitalization)
  Sender: FDA-Public Use
  Company Number: 2004UW02176

PATIENT
  Age: 67 Year
  Sex: Male
  Weight: 96.7 kg

DRUGS (9)
  1. DIPRIVAN [Suspect]
     Indication: INDUCTION OF ANAESTHESIA
     Dates: start: 20040130, end: 20040130
  2. SEVOFLURANE [Suspect]
     Indication: INDUCTION OF ANAESTHESIA
     Dates: start: 20040130, end: 20040130
  3. MIDAZOLAM [Suspect]
     Indication: INDUCTION OF ANAESTHESIA
     Dates: start: 20040130, end: 20040130
  4. FENTANYL [Suspect]
     Indication: INDUCTION OF ANAESTHESIA
     Dates: start: 20040130, end: 20040130
  5. BETAPACE [Concomitant]
  6. AMARYL [Concomitant]
  7. ATIVAN [Concomitant]
  8. INSULIN [Concomitant]
  9. CARDIZEM CD [Concomitant]

REACTIONS (7)
  - ALANINE AMINOTRANSFERASE INCREASED [None]
  - ASPARTATE AMINOTRANSFERASE INCREASED [None]
  - ASTHENIA [None]
  - MARKEDLY REDUCED DIETARY INTAKE [None]
  - NAUSEA [None]
  - POST PROCEDURAL COMPLICATION [None]
  - VOMITING [None]
